FAERS Safety Report 10079610 (Version 2)
Quarter: 2014Q2

REPORT INFORMATION
  Report Type: Spontaneous
  Country: FR (occurrence: FR)
  Receive Date: 20140415
  Receipt Date: 20140415
  Transmission Date: 20141212
  Serious: Yes (Hospitalization)
  Sender: FDA-Public Use
  Company Number: FR-NOVOPROD-406045

PATIENT
  Age: 66 Year
  Sex: Male
  Weight: 109 kg

DRUGS (10)
  1. VICTOZA [Suspect]
     Indication: TYPE 2 DIABETES MELLITUS
     Dosage: 0.6 MG, QD
     Route: 058
     Dates: start: 201312
  2. VICTOZA [Suspect]
     Dosage: 1.2 MG, QD (EVENING)
     Route: 058
  3. PREVISCAN                          /00789001/ [Suspect]
     Indication: PRODUCT USED FOR UNKNOWN INDICATION
     Dosage: UNK
     Route: 065
  4. PREVISCAN                          /00789001/ [Suspect]
     Dosage: 3/4 TH OF TABLET DAILY
     Route: 065
  5. REPAGLINIDE [Concomitant]
     Indication: TYPE 2 DIABETES MELLITUS
     Dosage: 6 DF, QD
     Route: 048
  6. LEVEMIR [Concomitant]
     Indication: TYPE 2 DIABETES MELLITUS
     Dosage: 34 IU, QD
     Route: 058
     Dates: start: 201312
  7. METFORMIN [Concomitant]
     Indication: TYPE 2 DIABETES MELLITUS
     Dosage: 3 DF, QD (1000)
     Route: 048
  8. AXELER [Concomitant]
     Indication: HYPERTENSION
     Dosage: 1 DF, QD (40/10)
     Route: 048
  9. BISOPROLOL [Concomitant]
     Indication: HYPERTENSION
     Dosage: 1 DF, QD
     Route: 048
  10. CRESTOR [Concomitant]
     Indication: METABOLIC SYNDROME
     Dosage: 1 DF, QD
     Route: 048

REACTIONS (3)
  - International normalised ratio increased [Recovered/Resolved]
  - Drug interaction [Recovered/Resolved]
  - Blood glucose abnormal [Unknown]
